FAERS Safety Report 7057274-0 (Version None)
Quarter: 2010Q4

REPORT INFORMATION
  Report Type: 
  Country: None (occurrence: None)
  Receive Date: 20101022
  Receipt Date: 20101018
  Transmission Date: 20110411
  Serious: Yes (Death)
  Sender: FDA-Public Use
  Company Number: US-SANOFI-AVENTIS-2010SA063284

PATIENT
  Age: 62 Year
  Sex: Female

DRUGS (4)
  1. HEPARIN [Suspect]
     Route: 041
  2. ENOXAPARIN SODIUM [Suspect]
  3. MILRINONE [Concomitant]
  4. NICARDIPINE HYDROCHLORIDE [Concomitant]

REACTIONS (2)
  - EMBOLIC CEREBRAL INFARCTION [None]
  - HEPARIN-INDUCED THROMBOCYTOPENIA [None]
